FAERS Safety Report 4928636-X (Version None)
Quarter: 2006Q1

REPORT INFORMATION
  Report Type: 
  Country: None (occurrence: None)
  Receive Date: 20060227
  Receipt Date: 20060227
  Transmission Date: 20060701
  Serious: Yes (Disabling)
  Sender: FDA-Public Use
  Company Number: None

PATIENT
  Age: 56 Year
  Sex: Female
  Weight: 63.5036 kg

DRUGS (1)
  1. FOSAMAX [Suspect]
     Indication: OSTEOPENIA
     Dosage: 1   PER WEEK  PO
     Route: 048
     Dates: start: 20051117, end: 20051225

REACTIONS (2)
  - GASTROOESOPHAGEAL REFLUX DISEASE [None]
  - MALAISE [None]
